FAERS Safety Report 21093891 (Version 3)
Quarter: 2023Q1

REPORT INFORMATION
  Report Type: Spontaneous
  Country: PL (occurrence: PL)
  Receive Date: 20220718
  Receipt Date: 20230221
  Transmission Date: 20230418
  Serious: Yes (Hospitalization, Other)
  Sender: FDA-Public Use
  Company Number: PL-VITABALANS-048-2022

PATIENT
  Age: 78 Year
  Sex: Female

DRUGS (16)
  1. AMLODIPINE [Interacting]
     Active Substance: AMLODIPINE BESYLATE
     Indication: Hypertension
     Dosage: 10 MILLIGRAM, QD
     Route: 065
  2. AMLODIPINE [Interacting]
     Active Substance: AMLODIPINE BESYLATE
     Indication: Cardiac failure
  3. CLARITHROMYCIN [Interacting]
     Active Substance: CLARITHROMYCIN
     Indication: Bronchitis
     Dosage: 500 MILLIGRAM, BID (1000 MILLIGRAM DAILY)
     Route: 065
  4. CLARITHROMYCIN [Interacting]
     Active Substance: CLARITHROMYCIN
     Dosage: 500 MILLIGRAM, QD
     Route: 065
  5. ATORVASTATIN [Interacting]
     Active Substance: ATORVASTATIN
     Indication: Product used for unknown indication
     Dosage: 10 MILLIGRAM, QD, PER DAY
     Route: 065
  6. METOPROLOL [Suspect]
     Active Substance: METOPROLOL
     Indication: Cardiac failure
     Dosage: 12.5 MILLIGRAM, QD,1X/DAY
     Route: 065
  7. METOPROLOL [Suspect]
     Active Substance: METOPROLOL
     Indication: Hypertension
  8. ERDOSTEINE [Suspect]
     Active Substance: ERDOSTEINE
     Indication: Bronchitis
     Dosage: 300 MILLIGRAM, QD
     Route: 065
  9. ERDOSTEINE [Suspect]
     Active Substance: ERDOSTEINE
     Dosage: 300 MILLIGRAM, BID,2X/DAY
     Route: 065
  10. ACETAMINOPHEN [Suspect]
     Active Substance: ACETAMINOPHEN
     Indication: Bronchitis
     Dosage: UNK
     Route: 065
  11. ACETAMINOPHEN [Suspect]
     Active Substance: ACETAMINOPHEN
     Indication: Antipyresis
  12. ACETAMINOPHEN [Suspect]
     Active Substance: ACETAMINOPHEN
     Indication: Pyrexia
  13. ZOFENOPRIL [Suspect]
     Active Substance: ZOFENOPRIL
     Indication: Cardiac failure
     Dosage: 7.5 MILLIGRAM, QD, 1X/DAY
     Route: 065
  14. ZOFENOPRIL [Suspect]
     Active Substance: ZOFENOPRIL
     Indication: Hypertension
  15. TORSEMIDE [Suspect]
     Active Substance: TORSEMIDE
     Indication: Hypertension
     Dosage: 5 MILLIGRAM, QD,1X/DAY
     Route: 065
  16. TORSEMIDE [Suspect]
     Active Substance: TORSEMIDE
     Indication: Cardiac failure

REACTIONS (10)
  - Hyponatraemia [Unknown]
  - Nausea [Unknown]
  - Labelled drug-drug interaction issue [Unknown]
  - Oedema peripheral [Unknown]
  - Drug interaction [Unknown]
  - Thirst [Unknown]
  - Asthenia [Unknown]
  - Vomiting [Unknown]
  - Bronchitis [Recovering/Resolving]
  - Peripheral swelling [Unknown]
